FAERS Safety Report 6089273-X (Version None)
Quarter: 2009Q1

REPORT INFORMATION
  Report Type: 
  Country: None (occurrence: None)
  Receive Date: 20090224
  Receipt Date: 20090210
  Transmission Date: 20090719
  Serious: Yes (Disabling)
  Sender: FDA-Public Use
  Company Number: FR-MERCK-0902FRA00022

PATIENT
  Age: 79 Year
  Sex: Female

DRUGS (9)
  1. FOSAMAX PLUS D [Suspect]
     Indication: OSTEOPOROSIS POSTMENOPAUSAL
     Route: 048
     Dates: start: 20080901, end: 20081201
  2. FENOFIBRATE [Concomitant]
     Indication: DYSLIPIDAEMIA
     Route: 048
  3. ASPIRIN LYSINE [Concomitant]
     Indication: ARTERITIS OBLITERANS
     Route: 048
  4. ASPIRIN LYSINE [Concomitant]
     Route: 048
  5. ATENOLOL AND CHLORTHALIDONE [Concomitant]
     Indication: HYPERTENSION
     Route: 048
  6. RILMENIDINE [Concomitant]
     Indication: HYPERTENSION
     Route: 048
  7. ISOSORBIDE MONONITRATE [Concomitant]
     Indication: ANGINA PECTORIS
     Route: 048
  8. ESOMEPRAZOLE [Concomitant]
     Indication: OESOPHAGITIS
     Route: 048
     Dates: start: 19990101
  9. GINKGO [Concomitant]
     Route: 048

REACTIONS (1)
  - MAJOR DEPRESSION [None]
